FAERS Safety Report 17298554 (Version 1)
Quarter: 2020Q1

REPORT INFORMATION
  Report Type: Spontaneous
  Country: ES (occurrence: ES)
  Receive Date: 20200122
  Receipt Date: 20200122
  Transmission Date: 20200409
  Serious: Yes (Hospitalization)
  Sender: FDA-Public Use
  Company Number: ES-TEVA-2020-ES-1171308

PATIENT
  Age: 41 Year
  Sex: Male

DRUGS (1)
  1. ATENOLOL (356A) [Suspect]
     Active Substance: ATENOLOL
     Dates: start: 20190101

REACTIONS (2)
  - Bradycardia [Recovered/Resolved]
  - Angina pectoris [Recovered/Resolved]

NARRATIVE: CASE EVENT DATE: 20191007
